FAERS Safety Report 6430179-1 (Version None)
Quarter: 2009Q4

REPORT INFORMATION
  Report Type: 
  Country: None (occurrence: None)
  Receive Date: 20091106
  Receipt Date: 20091103
  Transmission Date: 20100525
  Serious: Yes (Death, Other)
  Sender: FDA-Public Use
  Company Number: PHEH2009US13146

PATIENT
  Sex: Male

DRUGS (8)
  1. EXJADE [Suspect]
     Indication: LYMPHATIC DISORDER
     Dosage: 1500 MG DAILY
     Route: 048
     Dates: end: 20090223
  2. EXJADE [Suspect]
     Indication: BLOOD DISORDER
  3. ATIVAN [Concomitant]
     Dosage: 1 MG, PRN
  4. CIPRO [Concomitant]
     Dosage: 500 MG, BID
  5. FLUCONAZOLE [Concomitant]
     Dosage: UNK
  6. MEGACE [Concomitant]
     Dosage: 40 MG, QD
  7. ZANTAC [Concomitant]
     Dosage: 150 MG, QD
  8. PROZAC [Concomitant]
     Dosage: 40 MG, QD

REACTIONS (8)
  - BLOOD GLUCOSE INCREASED [None]
  - BLOOD UREA INCREASED [None]
  - DEATH [None]
  - HAEMATOCRIT DECREASED [None]
  - HAEMOGLOBIN DECREASED [None]
  - PLATELET COUNT DECREASED [None]
  - SERUM FERRITIN INCREASED [None]
  - WHITE BLOOD CELL COUNT ABNORMAL [None]
